FAERS Safety Report 9765221 (Version 1)
Quarter: 2013Q4

REPORT INFORMATION
  Report Type: Spontaneous
  Country: US (occurrence: US)
  Receive Date: 20131217
  Receipt Date: 20131217
  Transmission Date: 20140711
  Serious: No
  Sender: FDA-Public Use
  Company Number: US-GLAXOSMITHKLINE-A1002672A

PATIENT
  Age: 65 Year
  Sex: Male

DRUGS (10)
  1. VOTRIENT [Suspect]
     Dosage: 800MG PER DAY
     Route: 048
     Dates: start: 20121105
  2. AMLODIPINE [Concomitant]
     Dosage: 5MG PER DAY
     Route: 048
  3. ANUSOL HC [Concomitant]
     Dosage: 25MG TWICE PER DAY
     Route: 054
  4. CRESTOR [Concomitant]
     Route: 048
  5. MULTIVITAMIN [Concomitant]
     Dosage: 1TAB PER DAY
     Route: 048
  6. ONDANSETRON HCL [Concomitant]
     Dosage: 8MG THREE TIMES PER DAY
     Route: 048
  7. PROCHLORPERAZINE MALEATE [Concomitant]
     Dosage: 10MG FOUR TIMES PER DAY
     Route: 048
  8. SENNA CONCENTRATE + DOCUSATE SODIUM [Concomitant]
     Dosage: 1TAB PER DAY
     Route: 048
  9. VICODIN [Concomitant]
     Dosage: 1TAB FOUR TIMES PER DAY
     Route: 048
  10. VITAMIN D3 [Concomitant]
     Dosage: 2000UNIT PER DAY
     Route: 048

REACTIONS (7)
  - Constipation [Unknown]
  - Decreased appetite [Unknown]
  - Weight decreased [Unknown]
  - Arthralgia [Unknown]
  - Hypertension [Unknown]
  - Hair colour changes [Unknown]
  - Diarrhoea [Unknown]
